FAERS Safety Report 15015994 (Version 2)
Quarter: 2018Q2

REPORT INFORMATION
  Report Type: Spontaneous
  Country: ES (occurrence: ES)
  Receive Date: 20180615
  Receipt Date: 20180621
  Transmission Date: 20180711
  Serious: Yes (Death, Hospitalization)
  Sender: FDA-Public Use
  Company Number: ES-JNJFOC-20180615530

PATIENT
  Age: 88 Year
  Sex: Female

DRUGS (4)
  1. EMCONCOR COR [Concomitant]
     Active Substance: BISOPROLOL
     Dosage: 1/2 TABLET PER DAY
     Route: 048
     Dates: start: 20160419, end: 20170929
  2. XARELTO [Suspect]
     Active Substance: RIVAROXABAN
     Indication: PRODUCT USED FOR UNKNOWN INDICATION
     Route: 048
     Dates: start: 20160419, end: 20170929
  3. EPROSARTAN [Concomitant]
     Active Substance: EPROSARTAN
     Route: 048
     Dates: start: 20160419, end: 20170929
  4. ACFOL [Concomitant]
     Active Substance: FOLIC ACID
     Route: 048

REACTIONS (2)
  - Mallory-Weiss syndrome [Recovered/Resolved]
  - Anaemia [Recovered/Resolved]

NARRATIVE: CASE EVENT DATE: 20170929
